FAERS Safety Report 11477981 (Version 1)
Quarter: 2015Q3

REPORT INFORMATION
  Report Type: Spontaneous
  Country: CA (occurrence: CA)
  Receive Date: 20150909
  Receipt Date: 20150909
  Transmission Date: 20151125
  Serious: Yes (Disabling)
  Sender: FDA-Public Use
  Company Number: CA-TEVA-591874ACC

PATIENT
  Age: 12 Year
  Sex: Male
  Weight: 45 kg

DRUGS (45)
  1. MORPHINE [Concomitant]
     Active Substance: MORPHINE
  2. TOBRAMYCIN INJECTION USP [Concomitant]
  3. TRIMETHOPRIM-SULFAMETHOXAZOLE [Concomitant]
     Active Substance: SULFAMETHOXAZOLE\TRIMETHOPRIM
  4. CEFOTAXIME [Concomitant]
     Active Substance: CEFOTAXIME SODIUM
  5. DEXAMETHASONE. [Concomitant]
     Active Substance: DEXAMETHASONE
  6. DIMENHYDRINATE. [Concomitant]
     Active Substance: DIMENHYDRINATE
  7. NYSTATIN. [Concomitant]
     Active Substance: NYSTATIN
  8. ONCASPAR [Concomitant]
     Active Substance: PEGASPARGASE
  9. PYRIDOXINE [Concomitant]
     Active Substance: PYRIDOXINE
  10. TICARCILLIN [Concomitant]
     Active Substance: TICARCILLIN
  11. VINCRISTINE SULFATE INJECTION USP [Suspect]
     Active Substance: VINCRISTINE SULFATE
     Route: 042
  12. CLAVULIN [Concomitant]
     Active Substance: AMOXICILLIN\CLAVULANIC ACID
  13. PANTOPRAZOLE [Concomitant]
     Active Substance: PANTOPRAZOLE SODIUM
  14. LEUCOVORIN. [Concomitant]
     Active Substance: LEUCOVORIN
  15. ONDANSETRON [Concomitant]
     Active Substance: ONDANSETRON
  16. RANITIDINE [Concomitant]
     Active Substance: RANITIDINE\RANITIDINE HYDROCHLORIDE
  17. DIPHENHYDRAMINE. [Concomitant]
     Active Substance: DIPHENHYDRAMINE
  18. LANSOPRAZOLE. [Concomitant]
     Active Substance: LANSOPRAZOLE
  19. METOCLOPRAMIDE. [Concomitant]
     Active Substance: METOCLOPRAMIDE
  20. TAMIFLU [Concomitant]
     Active Substance: OSELTAMIVIR PHOSPHATE
  21. DOCUSATE NOS [Concomitant]
  22. FAMCICLOVIR. [Concomitant]
     Active Substance: FAMCICLOVIR
  23. FUROSEMIDE. [Concomitant]
     Active Substance: FUROSEMIDE
  24. HYDROCORTISONE. [Concomitant]
     Active Substance: HYDROCORTISONE
  25. L-ASPARAGINASE [Concomitant]
     Active Substance: ASPARAGINASE
     Route: 030
  26. NIFEDIPINE. [Concomitant]
     Active Substance: NIFEDIPINE
  27. PREDNISONE. [Concomitant]
     Active Substance: PREDNISONE
  28. ZINECARD [Concomitant]
     Active Substance: DEXRAZOXANE HYDROCHLORIDE
     Route: 042
  29. VINCRISTINE SULFATE INJECTION USP [Suspect]
     Active Substance: VINCRISTINE SULFATE
     Indication: ACUTE LYMPHOCYTIC LEUKAEMIA
     Route: 042
  30. ACETAMINOPHEN. [Concomitant]
     Active Substance: ACETAMINOPHEN
  31. ALLOPURINOL. [Concomitant]
     Active Substance: ALLOPURINOL
  32. AMLODIPINE [Concomitant]
     Active Substance: AMLODIPINE BESYLATE
  33. DOXORUBICIN HYDROCHLORIDE INJECTION [Concomitant]
     Active Substance: DOXORUBICIN HYDROCHLORIDE
  34. FLUTICASONE [Concomitant]
     Active Substance: FLUTICASONE\FLUTICASONE PROPIONATE
  35. MAGNESIUM [Concomitant]
     Active Substance: MAGNESIUM
  36. METHOTREXATE [Concomitant]
     Active Substance: METHOTREXATE
  37. METHYLPREDNISOLONE NOS [Concomitant]
     Active Substance: METHYLPREDNISOLONE OR METHYLPREDNISOLONE ACETATE
  38. PENTAMIDINE ISETHIONATE [Concomitant]
     Active Substance: PENTAMIDINE ISETHIONATE
  39. VANCOMYCIN [Concomitant]
     Active Substance: VANCOMYCIN
  40. AMOXICILLIN. [Concomitant]
     Active Substance: AMOXICILLIN
  41. CYTARABINE INJECTION [Concomitant]
     Active Substance: CYTARABINE
  42. GRANISETRON [Concomitant]
     Active Substance: GRANISETRON
  43. LORAZEPAM. [Concomitant]
     Active Substance: LORAZEPAM
  44. MERCAPTOPURINE. [Concomitant]
     Active Substance: MERCAPTOPURINE
  45. SALBUTAMOL [Concomitant]
     Active Substance: ALBUTEROL
     Route: 055

REACTIONS (4)
  - Peripheral sensory neuropathy [Not Recovered/Not Resolved]
  - Peroneal nerve palsy [Not Recovered/Not Resolved]
  - Pain in extremity [Not Recovered/Not Resolved]
  - Peripheral motor neuropathy [Not Recovered/Not Resolved]
